FAERS Safety Report 6006303-1 (Version None)
Quarter: 2008Q4

REPORT INFORMATION
  Report Type: 
  Country: None (occurrence: None)
  Receive Date: 20081216
  Receipt Date: 20081216
  Transmission Date: 20090506
  Serious: Yes (Life-Threatening, Hospitalization)
  Sender: FDA-Public Use
  Company Number: None

PATIENT
  Sex: Male
  Weight: 55.7924 kg

DRUGS (6)
  1. OXCARBAZEPINE [Suspect]
     Indication: AFFECTIVE DISORDER
     Dosage: 900 MG BID PO
     Route: 048
     Dates: start: 20080528, end: 20080528
  2. TRILEPTAL [Concomitant]
  3. METHOCARBAMOL [Concomitant]
  4. OLANZAPINE [Concomitant]
  5. TEMAZEPAM [Concomitant]
  6. LORAZEPAM [Concomitant]

REACTIONS (3)
  - ATRIOVENTRICULAR BLOCK [None]
  - HYPONATRAEMIA [None]
  - POLYDIPSIA [None]
